FAERS Safety Report 4763988-5 (Version None)
Quarter: 2005Q3

REPORT INFORMATION
  Report Type: 
  Country: None (occurrence: None)
  Receive Date: 20050908
  Receipt Date: 20050808
  Transmission Date: 20060218
  Serious: Yes (Hospitalization)
  Sender: FDA-Public Use
  Company Number: JP-MERCK-0508USA01830

PATIENT
  Age: 84 Year
  Sex: Female

DRUGS (8)
  1. PEPCID RPD [Suspect]
     Indication: GASTRIC ULCER HAEMORRHAGE
     Route: 048
     Dates: start: 20040901, end: 20050520
  2. LIPITOR [Suspect]
     Indication: HYPERLIPIDAEMIA
     Route: 048
     Dates: start: 20041130, end: 20050520
  3. ULCERLMIN [Concomitant]
     Indication: GASTRIC ULCER HAEMORRHAGE
     Route: 048
     Dates: start: 20040901
  4. PROMAC [Concomitant]
     Indication: GASTRIC ULCER HAEMORRHAGE
     Route: 048
     Dates: start: 20040901
  5. LOXONIN [Concomitant]
     Indication: HERPES ZOSTER
     Route: 048
     Dates: start: 20041013
  6. MUCOSTA [Concomitant]
     Indication: HERPES ZOSTER
     Route: 048
     Dates: start: 20041013
  7. RHYTHMY [Concomitant]
     Indication: INSOMNIA
     Route: 048
     Dates: start: 20041013
  8. PURSENNID [Concomitant]
     Indication: CONSTIPATION
     Route: 048
     Dates: start: 20041013

REACTIONS (5)
  - ANAEMIA [None]
  - BLOOD CHOLESTEROL INCREASED [None]
  - HERPES ZOSTER [None]
  - HYPERLIPIDAEMIA [None]
  - NEURALGIA [None]
